FAERS Safety Report 9680037 (Version 1)
Quarter: 2013Q4

REPORT INFORMATION
  Report Type: Spontaneous
  Country: US (occurrence: US)
  Receive Date: 20131110
  Receipt Date: 20131110
  Transmission Date: 20140711
  Serious: No
  Sender: FDA-Public Use
  Company Number: US-009507513-1311USA000097

PATIENT
  Age: 65 Year
  Sex: Male

DRUGS (4)
  1. FINASTERIDE [Suspect]
     Dosage: UNK
     Dates: start: 20130927, end: 20131018
  2. PROPECIA [Concomitant]
     Indication: ALOPECIA
     Dosage: 1 MG, ONCE DAILY
     Route: 048
     Dates: start: 2005, end: 20130927
  3. PROPECIA [Concomitant]
     Dosage: 1 MG, ONCE DAILY
     Route: 048
     Dates: start: 20131018
  4. PREDNISONE [Concomitant]

REACTIONS (1)
  - Alopecia [Unknown]
